FAERS Safety Report 8177711-8 (Version None)
Quarter: 2012Q1

REPORT INFORMATION
  Report Type: 
  Country: None (occurrence: None)
  Receive Date: 20120301
  Receipt Date: 20120227
  Transmission Date: 20120608
  Serious: Yes (Death)
  Sender: FDA-Public Use
  Company Number: PHHY2012BR016871

PATIENT
  Sex: Female

DRUGS (11)
  1. ESPIRONOLACTONA [Concomitant]
     Dosage: UNK UKN, UNK
  2. ATORVASTATIN [Concomitant]
     Indication: BLOOD CHOLESTEROL INCREASED
     Dosage: UNK UKN, UNK
  3. PANTOGAR [Concomitant]
     Dosage: UNK UKN, UNK
  4. FENFLURAMINE HYDROCHLORIDE [Concomitant]
     Dosage: UNK UKN, UNK
  5. PANTOPRAZOLE [Concomitant]
     Dosage: UNK UKN, UNK
  6. EXELON [Suspect]
     Indication: DEMENTIA ALZHEIMER'S TYPE
     Dosage: 4.6 MG, (9MG/5CM2 PATCH), ONE PATCH DAILY
     Route: 062
  7. FUROSEMIDE [Concomitant]
     Dosage: UNK UKN, UNK
  8. SOMALGIN [Concomitant]
     Dosage: UNK UKN, UNK
  9. MULTI-VITAMIN [Concomitant]
     Dosage: UNK UKN, UNK
  10. DABIGATRAN ETEXILATE [Concomitant]
     Indication: COAGULOPATHY
     Dosage: UNK UKN, UNK
  11. SEROQUEL [Concomitant]
     Indication: MENTAL DISORDER
     Dosage: UNK UKN, UNK

REACTIONS (2)
  - ARTERIOSCLEROSIS CORONARY ARTERY [None]
  - INFARCTION [None]
